FAERS Safety Report 8186388 (Version 3)
Quarter: 2013Q2

REPORT INFORMATION
  Report Type: Spontaneous
  Country: US (occurrence: US)
  Receive Date: 20111018
  Receipt Date: 20130408
  Transmission Date: 20140414
  Serious: Yes (Hospitalization)
  Sender: FDA-Public Use
  Company Number: US-GLAXOSMITHKLINE-A0921879A

PATIENT
  Age: 52 Year
  Sex: Male

DRUGS (7)
  1. AVANDIA [Suspect]
     Indication: DIABETES MELLITUS
     Dosage: 8MG PER DAY
     Route: 048
     Dates: start: 20000406, end: 20041207
  2. THEODUR [Concomitant]
  3. LANOXIN [Concomitant]
  4. PREDNISONE [Concomitant]
  5. PROVENTIL [Concomitant]
  6. LIPITOR [Concomitant]
  7. INSULIN [Concomitant]

REACTIONS (3)
  - Myocardial infarction [Not Recovered/Not Resolved]
  - Cardiomyopathy [Unknown]
  - Heart rate irregular [Unknown]
